FAERS Safety Report 4638881-9 (Version None)
Quarter: 2005Q2

REPORT INFORMATION
  Report Type: 
  Country: None (occurrence: None)
  Receive Date: 20050419
  Receipt Date: 20050407
  Transmission Date: 20051028
  Serious: Yes (Life-Threatening, Hospitalization)
  Sender: FDA-Public Use
  Company Number: JP-JNJFOC-20050303997

PATIENT
  Sex: Female

DRUGS (7)
  1. RISPERDAL [Suspect]
     Route: 049
  2. RISPERDAL [Suspect]
     Route: 049
  3. RALOXIFENE HCL [Concomitant]
     Route: 049
     Dates: start: 20050124
  4. RABEPRAZOLE SODIUM [Concomitant]
     Route: 049
  5. URSODESOXYCHOLIC ACID [Concomitant]
  6. PIRENZEPINE HYDROCHLORIDE [Concomitant]
     Route: 049
  7. CALCITRIOL [Concomitant]
     Dosage: 1 MCG DAILY
     Route: 049

REACTIONS (6)
  - ANOREXIA [None]
  - BLOOD UREA INCREASED [None]
  - DEHYDRATION [None]
  - DEPRESSED LEVEL OF CONSCIOUSNESS [None]
  - HYPERNATRAEMIA [None]
  - INSOMNIA [None]
